FAERS Safety Report 21448433 (Version 2)
Quarter: 2022Q4

REPORT INFORMATION
  Report Type: Spontaneous
  Country: US (occurrence: US)
  Receive Date: 20221013
  Receipt Date: 20221207
  Transmission Date: 20230113
  Serious: Yes (Hospitalization)
  Sender: FDA-Public Use
  Company Number: US-BRISTOL-MYERS SQUIBB COMPANY-2022-118148

PATIENT
  Age: 68 Year
  Sex: Female

DRUGS (1)
  1. THALIDOMIDE [Suspect]
     Active Substance: THALIDOMIDE
     Indication: Pyoderma gangrenosum
     Dosage: DOSE : UNAVAILABLE;     FREQ : EVERY NIGHT AT BEDTIME
     Route: 048
     Dates: start: 202208

REACTIONS (10)
  - Infection [Unknown]
  - Limb discomfort [Unknown]
  - Hypoaesthesia [Unknown]
  - Tremor [Unknown]
  - Off label use [Unknown]
  - Muscular weakness [Not Recovered/Not Resolved]
  - Paraesthesia [Not Recovered/Not Resolved]
  - Dizziness [Recovering/Resolving]
  - Spinal stenosis [Recovering/Resolving]
  - Hypokinesia [Recovering/Resolving]

NARRATIVE: CASE EVENT DATE: 20221001
